FAERS Safety Report 6411071-5 (Version None)
Quarter: 2009Q4

REPORT INFORMATION
  Report Type: 
  Country: None (occurrence: None)
  Receive Date: 20091021
  Receipt Date: 20091021
  Transmission Date: 20100525
  Serious: Yes (Hospitalization)
  Sender: FDA-Public Use
  Company Number: None

PATIENT
  Age: 47 Year
  Sex: Female
  Weight: 71.2147 kg

DRUGS (2)
  1. ALDARA [Suspect]
     Indication: ACTINIC KERATOSIS
     Dosage: 3 X A WEEK 3 X A WEEK TOP
     Route: 061
     Dates: start: 20090921, end: 20091012
  2. ALDARA [Suspect]
     Indication: BASAL CELL CARCINOMA
     Dosage: 3 X A WEEK 3 X A WEEK TOP
     Route: 061
     Dates: start: 20090921, end: 20091012

REACTIONS (11)
  - ARTHRALGIA [None]
  - DIARRHOEA [None]
  - DYSPHONIA [None]
  - GENERAL PHYSICAL HEALTH DETERIORATION [None]
  - HYPERTENSION [None]
  - HYPOAESTHESIA FACIAL [None]
  - HYPOAESTHESIA ORAL [None]
  - INFLUENZA LIKE ILLNESS [None]
  - MALAISE [None]
  - PHARYNGEAL HYPOAESTHESIA [None]
  - SOMNOLENCE [None]
